FAERS Safety Report 25019471 (Version 1)
Quarter: 2025Q1

REPORT INFORMATION
  Report Type: Spontaneous
  Country: CN (occurrence: CN)
  Receive Date: 20250227
  Receipt Date: 20250227
  Transmission Date: 20250408
  Serious: Yes (Hospitalization)
  Sender: NOVARTIS
  Company Number: CN-002147023-NVSC2025CN030146

PATIENT
  Age: 71 Year
  Sex: Female

DRUGS (1)
  1. TEGRETOL [Suspect]
     Active Substance: CARBAMAZEPINE
     Indication: Trigeminal neuralgia
     Dosage: 200.000 MG, QD
     Route: 048
     Dates: start: 20250119, end: 20250207

REACTIONS (16)
  - Rash [Recovering/Resolving]
  - Pruritus [Recovering/Resolving]
  - Anaphylactic shock [Unknown]
  - Drug eruption [Unknown]
  - Diabetes mellitus [Unknown]
  - Electrolyte imbalance [Unknown]
  - Hyponatraemia [Unknown]
  - Hypocalcaemia [Unknown]
  - Hyperlactacidaemia [Unknown]
  - Renal failure [Unknown]
  - Hypoproteinaemia [Unknown]
  - Hypercoagulation [Unknown]
  - Venous thrombosis limb [Unknown]
  - Blood pressure decreased [Unknown]
  - Chest discomfort [Unknown]
  - Discomfort [Unknown]

NARRATIVE: CASE EVENT DATE: 20250119
